FAERS Safety Report 4852373-3 (Version None)
Quarter: 2005Q4

REPORT INFORMATION
  Report Type: 
  Country: None (occurrence: None)
  Receive Date: 20051213
  Receipt Date: 20050506
  Transmission Date: 20060501
  Serious: Yes (Other)
  Sender: FDA-Public Use
  Company Number: PHRM2005FR01467

PATIENT
  Sex: Male
  Weight: 66 kg

DRUGS (2)
  1. DAFLON [Concomitant]
     Dosage: UNK, UNK
     Route: 048
     Dates: end: 20050317
  2. FRACTAL [Suspect]
     Dosage: 80 MG, QD
     Route: 048
     Dates: start: 20040503, end: 20050317

REACTIONS (4)
  - BULLOUS LUNG DISEASE [None]
  - DYSPNOEA EXERTIONAL [None]
  - INTERSTITIAL LUNG DISEASE [None]
  - PULMONARY EOSINOPHILIA [None]
